FAERS Safety Report 13588043 (Version 2)
Quarter: 2017Q2

REPORT INFORMATION
  Report Type: Spontaneous
  Country: JP (occurrence: JP)
  Receive Date: 20170527
  Receipt Date: 20170606
  Transmission Date: 20170830
  Serious: No
  Sender: FDA-Public Use
  Company Number: JP-AMGEN-JPNSP2017078954

PATIENT
  Age: 85 Year
  Sex: Male

DRUGS (2)
  1. RANMARK [Suspect]
     Active Substance: DENOSUMAB
     Indication: PRODUCT USED FOR UNKNOWN INDICATION
     Dosage: UNK
     Route: 058
     Dates: start: 201409, end: 201409
  2. GONAX [Concomitant]
     Active Substance: DEGARELIX
     Dosage: UNK
     Route: 058

REACTIONS (2)
  - Stomatitis [Unknown]
  - Drug eruption [Unknown]
